FAERS Safety Report 4941171-8 (Version None)
Quarter: 2006Q1

REPORT INFORMATION
  Report Type: 
  Country: None (occurrence: None)
  Receive Date: 20060309
  Receipt Date: 20060309
  Transmission Date: 20060701
  Serious: No
  Sender: FDA-Public Use
  Company Number: None

PATIENT
  Age: 49 Year
  Sex: Female
  Weight: 83.4619 kg

DRUGS (1)
  1. ZICAM [Suspect]
     Indication: NASOPHARYNGITIS
     Dosage: EVERY 2/3 HOURS SEVERAL DAYS NASAL
     Route: 045
     Dates: start: 20060216, end: 20060221

REACTIONS (2)
  - AGEUSIA [None]
  - ANOSMIA [None]
